FAERS Safety Report 15279872 (Version 1)
Quarter: 2018Q3

REPORT INFORMATION
  Report Type: Spontaneous
  Country: US (occurrence: US)
  Receive Date: 20180730
  Receipt Date: 20180730
  Transmission Date: 20181010
  Serious: Yes (Other)
  Sender: FDA-Public Use
  Company Number: None

PATIENT
  Age: 76 Year
  Sex: Female
  Weight: 55.35 kg

DRUGS (4)
  1. GABAPENTIN 100MG [Concomitant]
     Active Substance: GABAPENTIN
  2. PROCRIT [Concomitant]
     Active Substance: ERYTHROPOIETIN
  3. OMEPRAZOLE 20MG [Concomitant]
     Active Substance: OMEPRAZOLE
  4. REVLIMID [Suspect]
     Active Substance: LENALIDOMIDE
     Indication: PLASMA CELL MYELOMA
     Route: 048
     Dates: start: 20180728, end: 20180729

REACTIONS (2)
  - Decreased appetite [None]
  - Rash erythematous [None]

NARRATIVE: CASE EVENT DATE: 20180729
